FAERS Safety Report 8232216-0 (Version None)
Quarter: 2012Q1

REPORT INFORMATION
  Report Type: 
  Country: None (occurrence: None)
  Receive Date: 20120320
  Receipt Date: 20120305
  Transmission Date: 20120608
  Serious: Yes (Death, Hospitalization, Other)
  Sender: FDA-Public Use
  Company Number: 2011SGN00366

PATIENT
  Age: 50 Year
  Sex: Male

DRUGS (2)
  1. ADCETRIS [Suspect]
     Indication: HODGKIN'S DISEASE
     Dosage: 1.8 MG/KG, Q21D, INTRAVENOUS 1.2 MG/KG, Q21D
     Route: 042
     Dates: start: 20110523, end: 20110815
  2. ADCETRIS [Suspect]
     Indication: HODGKIN'S DISEASE
     Dosage: 1.8 MG/KG, Q21D, INTRAVENOUS 1.2 MG/KG, Q21D
     Route: 042
     Dates: start: 20110914, end: 20111024

REACTIONS (11)
  - FALL [None]
  - CENTRAL NERVOUS SYSTEM LESION [None]
  - PROGRESSIVE MULTIFOCAL LEUKOENCEPHALOPATHY [None]
  - JC VIRUS TEST POSITIVE [None]
  - HODGKIN'S DISEASE [None]
  - GENERAL PHYSICAL HEALTH DETERIORATION [None]
  - NEUROPATHY PERIPHERAL [None]
  - WHEELCHAIR USER [None]
  - DIZZINESS [None]
  - HYPOAESTHESIA [None]
  - SUBARACHNOID HAEMORRHAGE [None]
